FAERS Safety Report 14895352 (Version 1)
Quarter: 2018Q2

REPORT INFORMATION
  Report Type: Spontaneous
  Country: US (occurrence: US)
  Receive Date: 20180427
  Receipt Date: 20180427
  Transmission Date: 20180711
  Serious: No
  Sender: FDA-Public Use
  Company Number: None

PATIENT
  Age: 53 Year
  Sex: Female
  Weight: 56.25 kg

DRUGS (1)
  1. DYSPORT [Suspect]
     Active Substance: ABOBOTULINUMTOXINA
     Dates: start: 20180226, end: 20180226

REACTIONS (14)
  - Influenza like illness [None]
  - Headache [None]
  - Nausea [None]
  - Fatigue [None]
  - Decreased appetite [None]
  - Aphasia [None]
  - Arthralgia [None]
  - Chest discomfort [None]
  - Dizziness [None]
  - Dyspnoea [None]
  - Pyrexia [None]
  - Nasopharyngitis [None]
  - Feeling abnormal [None]
  - Cough [None]

NARRATIVE: CASE EVENT DATE: 20180226
